FAERS Safety Report 17943168 (Version 1)
Quarter: 2020Q2

REPORT INFORMATION
  Report Type: Spontaneous
  Country: FI (occurrence: FI)
  Receive Date: 20200625
  Receipt Date: 20200625
  Transmission Date: 20200714
  Serious: Yes (Hospitalization, Other)
  Sender: FDA-Public Use
  Company Number: FI-LUPIN PHARMACEUTICALS INC.-2020-02998

PATIENT
  Age: 29 Year
  Sex: Female
  Weight: 63 kg

DRUGS (2)
  1. LAMOTRIGINE. [Suspect]
     Active Substance: LAMOTRIGINE
     Indication: EPILEPSY
     Dosage: 150 MILLIGRAM, BID
     Route: 065
     Dates: start: 2015
  2. LEVETIRACETAM. [Suspect]
     Active Substance: LEVETIRACETAM
     Indication: EPILEPSY
     Dosage: 500 MILLIGRAM, BID
     Route: 065
     Dates: start: 2015

REACTIONS (9)
  - Tonsillar hypertrophy [Recovered/Resolved]
  - Upper respiratory tract infection [Recovering/Resolving]
  - Granuloma [Recovering/Resolving]
  - Hypogammaglobulinaemia [Recovering/Resolving]
  - Obstructive airways disorder [Recovered/Resolved]
  - Dysphagia [Recovered/Resolved]
  - Condition aggravated [Recovering/Resolving]
  - Exercise tolerance decreased [Recovered/Resolved]
  - Laryngeal oedema [Recovered/Resolved]

NARRATIVE: CASE EVENT DATE: 201801
